FAERS Safety Report 6066059-3 (Version None)
Quarter: 2009Q1

REPORT INFORMATION
  Report Type: 
  Country: None (occurrence: None)
  Receive Date: 20090205
  Receipt Date: 20090128
  Transmission Date: 20090719
  Serious: Yes (Death, Hospitalization)
  Sender: FDA-Public Use
  Company Number: GR-AMGEN-UK316281

PATIENT
  Sex: Female
  Weight: 47 kg

DRUGS (7)
  1. ARANESP [Suspect]
     Indication: DIALYSIS
     Route: 042
     Dates: start: 20040903, end: 20071210
  2. TITRALAC [Concomitant]
     Route: 065
     Dates: start: 20040903, end: 20071211
  3. ONE-ALPHA [Concomitant]
     Route: 065
     Dates: start: 20050124, end: 20070511
  4. IRON [Concomitant]
     Route: 065
     Dates: start: 20040614, end: 20070924
  5. NEUROBION [Concomitant]
     Route: 065
  6. IRON DEXTRAN [Concomitant]
     Route: 065
     Dates: start: 20050124, end: 20070924
  7. FILICINE [Concomitant]
     Route: 065

REACTIONS (2)
  - CARDIAC ARREST [None]
  - PYREXIA [None]
